FAERS Safety Report 5163279-7 (Version None)
Quarter: 2006Q4

REPORT INFORMATION
  Report Type: 
  Country: None (occurrence: None)
  Receive Date: 20061204
  Receipt Date: 20061121
  Transmission Date: 20070319
  Serious: Yes (Death, Hospitalization, Other)
  Sender: FDA-Public Use
  Company Number: CZ-ABBOTT-06P-217-0351034-00

PATIENT
  Sex: Male
  Weight: 82 kg

DRUGS (36)
  1. ZEMPLAR [Suspect]
     Indication: HYPERPARATHYROIDISM
     Route: 042
     Dates: start: 20060605, end: 20061108
  2. AMINOPHYLLINE [Concomitant]
     Indication: DRUG USE FOR UNKNOWN INDICATION
  3. FORMOTEROL FUMARATE [Concomitant]
     Indication: DRUG USE FOR UNKNOWN INDICATION
     Dosage: INHALANT CAPSULES
     Route: 055
  4. DUOVENT [Concomitant]
     Indication: DRUG USE FOR UNKNOWN INDICATION
     Dosage: INSPIRATION 2-2-2
  5. BUDESONIDE [Concomitant]
     Indication: DRUG USE FOR UNKNOWN INDICATION
     Dosage: SPRAY 2-2-2
     Route: 055
  6. FUROSEMIDE [Concomitant]
     Indication: DRUG USE FOR UNKNOWN INDICATION
     Dosage: TOTAL DAILY DOSE 1000 MG
  7. FUROSEMIDE [Concomitant]
  8. FUROSEMIDE [Concomitant]
  9. SPIRONOLACTONE [Concomitant]
     Indication: DRUG USE FOR UNKNOWN INDICATION
  10. ENOXAPARIN SODIUM [Concomitant]
     Indication: DRUG USE FOR UNKNOWN INDICATION
     Dosage: 5000 J.S.C. AT 20:00
     Route: 058
  11. FOSINOPRIL SODIUM [Concomitant]
     Indication: DRUG USE FOR UNKNOWN INDICATION
     Dosage: 1/2 - 20MG TABLET
  12. DOXAZOSIN MESYLATE [Concomitant]
     Indication: DRUG USE FOR UNKNOWN INDICATION
  13. ALLOPURINOL [Concomitant]
     Indication: GOUT
  14. VIDISIC [Concomitant]
     Indication: DRUG USE FOR UNKNOWN INDICATION
     Dosage: GEL TO BOTH EYES
  15. EPOETIN ALFA [Concomitant]
     Indication: DRUG USE FOR UNKNOWN INDICATION
     Dosage: 10000 J
     Route: 058
  16. DIPYRONE TAB [Concomitant]
     Indication: DRUG USE FOR UNKNOWN INDICATION
  17. GABALEPT [Concomitant]
     Indication: DRUG USE FOR UNKNOWN INDICATION
  18. TIAPRIDE [Concomitant]
     Indication: DRUG USE FOR UNKNOWN INDICATION
  19. LACTULOSE [Concomitant]
     Indication: DRUG USE FOR UNKNOWN INDICATION
  20. EPOETIN BETA [Concomitant]
     Indication: DRUG USE FOR UNKNOWN INDICATION
  21. COTRIM [Concomitant]
     Indication: DRUG USE FOR UNKNOWN INDICATION
  22. HYDROMORPHONE HYDROCHLORIDE [Concomitant]
     Indication: DRUG USE FOR UNKNOWN INDICATION
  23. NORFLOXACIN [Concomitant]
     Indication: DRUG USE FOR UNKNOWN INDICATION
  24. ACETAMINOPHEN [Concomitant]
     Indication: DRUG USE FOR UNKNOWN INDICATION
  25. CALCITONIN-SALMON [Concomitant]
     Indication: DRUG USE FOR UNKNOWN INDICATION
  26. BROMAZEPAM [Concomitant]
     Indication: DRUG USE FOR UNKNOWN INDICATION
  27. ZOLPIDEM TARTRATE [Concomitant]
     Indication: DRUG USE FOR UNKNOWN INDICATION
  28. DONAGAN [Concomitant]
     Indication: DRUG USE FOR UNKNOWN INDICATION
  29. MORPHINE SULFATE [Concomitant]
     Indication: DRUG USE FOR UNKNOWN INDICATION
  30. VELCADE [Concomitant]
     Indication: DRUG USE FOR UNKNOWN INDICATION
  31. PREDNISONE TAB [Concomitant]
     Indication: DRUG USE FOR UNKNOWN INDICATION
  32. OMEPRAZOLE [Concomitant]
     Indication: DRUG USE FOR UNKNOWN INDICATION
  33. MYCOMAX [Concomitant]
     Indication: DRUG USE FOR UNKNOWN INDICATION
  34. MELPHALAN [Concomitant]
     Indication: INFUSION
     Dosage: INFUSION THERAPY
  35. TRANSFUSION PRODUCTS [Concomitant]
     Indication: DRUG USE FOR UNKNOWN INDICATION
  36. ALLOPURINOL [Concomitant]

REACTIONS (8)
  - BRONCHOPNEUMONIA [None]
  - CONFUSIONAL STATE [None]
  - HYPOTENSION [None]
  - MULTIPLE MYELOMA [None]
  - PRESYNCOPE [None]
  - RESTLESSNESS [None]
  - UNRESPONSIVE TO STIMULI [None]
  - URETHRAL HAEMORRHAGE [None]
